FAERS Safety Report 6549567-8 (Version None)
Quarter: 2010Q1

REPORT INFORMATION
  Report Type: 
  Country: None (occurrence: None)
  Receive Date: 20100119
  Receipt Date: 20100104
  Transmission Date: 20100710
  Serious: Yes (Death, Hospitalization)
  Sender: FDA-Public Use
  Company Number: 2009002915

PATIENT
  Age: 71 Year
  Sex: Male
  Weight: 89 kg

DRUGS (4)
  1. ERLOTINIB HYDROCHLORIDE [Suspect]
     Indication: NON-SMALL CELL LUNG CANCER
     Dosage: (150 MG, QD),ORAL
     Route: 048
     Dates: start: 20090817, end: 20090910
  2. ARQ 197/PLACEBO [Suspect]
     Indication: NON-SMALL CELL LUNG CANCER
     Dosage: (BID),ORAL
     Route: 048
     Dates: start: 20090817, end: 20090910
  3. NOVALGIN (METAMIZOLE SODIUM) [Concomitant]
  4. LENDORM [Concomitant]

REACTIONS (4)
  - DIARRHOEA [None]
  - HAEMOGLOBIN DECREASED [None]
  - PNEUMONIA [None]
  - TACHYCARDIA [None]
